FAERS Safety Report 6245324-0 (Version None)
Quarter: 2009Q2

REPORT INFORMATION
  Report Type: 
  Country: None (occurrence: None)
  Receive Date: 20090625
  Receipt Date: 20090618
  Transmission Date: 20091009
  Serious: Yes (Other)
  Sender: FDA-Public Use
  Company Number: US-AVENTIS-200915410US

PATIENT
  Age: 61 Year
  Sex: Male

DRUGS (2)
  1. APIDRA [Suspect]
     Dosage: DOSE: SLIDING SCALE
     Route: 058
     Dates: start: 20080101
  2. OPTICLIK GREY [Suspect]
     Dates: start: 20080101

REACTIONS (2)
  - INJURY CORNEAL [None]
  - RETINAL DETACHMENT [None]
